FAERS Safety Report 9219788 (Version 2)
Quarter: 2013Q2

REPORT INFORMATION
  Report Type: Report from Study
  Country: US (occurrence: US)
  Receive Date: 20130409
  Receipt Date: 20130516
  Transmission Date: 20140414
  Serious: Yes (Death, Other)
  Sender: FDA-Public Use
  Company Number: US-ROCHE-1208727

PATIENT
  Sex: 0

DRUGS (1)
  1. ALTEPLASE [Suspect]
     Indication: ISCHAEMIC STROKE
     Dosage: 0.6 MG/KG OR 0.9 MG/KG
     Route: 042

REACTIONS (2)
  - Death [Fatal]
  - Treatment failure [Unknown]
